FAERS Safety Report 7364026-0 (Version None)
Quarter: 2011Q1

REPORT INFORMATION
  Report Type: 
  Country: None (occurrence: None)
  Receive Date: 20110321
  Receipt Date: 20110307
  Transmission Date: 20110831
  Serious: Yes (Other)
  Sender: FDA-Public Use
  Company Number: PHFR2011GB00863

PATIENT
  Sex: Male
  Weight: 74.55 kg

DRUGS (7)
  1. HYDROCORTISONE [Concomitant]
     Dosage: 10 MG, UNK
     Route: 048
  2. PREGABALIN [Concomitant]
     Dosage: 150 MG, UNK
     Route: 048
  3. AFINITOR [Suspect]
     Dosage: 10 MG
     Route: 048
     Dates: start: 20101217
  4. FLUDROCORTISONE [Concomitant]
     Dosage: 100 UG, UNK
     Route: 048
  5. ASPIRIN [Concomitant]
     Dosage: 75 MG, UNK
     Route: 048
  6. PRAVASTATIN [Concomitant]
     Dosage: 40 MG, UNK
     Route: 048
  7. ATENOLOL [Concomitant]
     Dosage: 50 MG, UNK
     Route: 048

REACTIONS (21)
  - BLOOD SODIUM DECREASED [None]
  - C-REACTIVE PROTEIN INCREASED [None]
  - EOSINOPHIL COUNT DECREASED [None]
  - HAEMATOCRIT DECREASED [None]
  - BLOOD POTASSIUM DECREASED [None]
  - VOMITING [None]
  - NAUSEA [None]
  - BLOOD ALKALINE PHOSPHATASE DECREASED [None]
  - BLOOD GLUCOSE INCREASED [None]
  - CONFUSIONAL STATE [None]
  - HAEMOGLOBIN DECREASED [None]
  - PLATELET COUNT DECREASED [None]
  - PROTEIN TOTAL DECREASED [None]
  - RED BLOOD CELL COUNT DECREASED [None]
  - LOCALISED INFECTION [None]
  - ALANINE AMINOTRANSFERASE INCREASED [None]
  - LYMPHOCYTE COUNT DECREASED [None]
  - NEUTROPHIL COUNT DECREASED [None]
  - WHITE BLOOD CELL COUNT DECREASED [None]
  - BLOOD ALBUMIN DECREASED [None]
  - BLOOD UREA DECREASED [None]
